FAERS Safety Report 25884084 (Version 1)
Quarter: 2025Q4

REPORT INFORMATION
  Report Type: Spontaneous
  Country: US (occurrence: US)
  Receive Date: 20251006
  Receipt Date: 20251006
  Transmission Date: 20260117
  Serious: Yes (Other)
  Sender: ABBVIE
  Company Number: US-ABBVIE-6488349

PATIENT
  Sex: Male

DRUGS (1)
  1. RINVOQ [Suspect]
     Active Substance: UPADACITINIB
     Indication: Colitis ulcerative
     Dosage: COATED TABLET
     Route: 048

REACTIONS (3)
  - Embolism venous [Recovering/Resolving]
  - Pulmonary embolism [Recovering/Resolving]
  - Therapeutic product effect incomplete [Unknown]
